FAERS Safety Report 9670255 (Version 4)
Quarter: 2014Q1

REPORT INFORMATION
  Report Type: Spontaneous
  Country: DK (occurrence: DK)
  Receive Date: 20131105
  Receipt Date: 20140324
  Transmission Date: 20141002
  Serious: Yes (Disabling)
  Sender: FDA-Public Use
  Company Number: DK-GE HEALTHCARE MEDICAL DIAGNOSTICS-OSCN-NO-1003S-0064

PATIENT
  Age: 34 Year
  Sex: Male
  Weight: 83 kg

DRUGS (9)
  1. GADOLINIUM (UNSPECIFIED) [Suspect]
     Indication: RENAL TRANSPLANT
     Dosage: DOSE NOT REPORTED
     Route: 042
     Dates: start: 19980906, end: 19980906
  2. GADOLINIUM (UNSPECIFIED) [Suspect]
     Indication: DIAGNOSTIC PROCEDURE
  3. FERRO DURETTER [Concomitant]
  4. TACROLIMUS [Concomitant]
  5. PREDNISOLON DAK [Concomitant]
  6. BURINEX [Concomitant]
  7. CENTYL [Concomitant]
  8. ACTRAPID FLEXPEN [Concomitant]
  9. INSULATARD FLEXPEN [Concomitant]

REACTIONS (8)
  - Nephrogenic systemic fibrosis [Not Recovered/Not Resolved]
  - Eczema [Not Recovered/Not Resolved]
  - Arthralgia [Not Recovered/Not Resolved]
  - Limb discomfort [Not Recovered/Not Resolved]
  - Myalgia [Not Recovered/Not Resolved]
  - Muscle fatigue [Not Recovered/Not Resolved]
  - Restless legs syndrome [Not Recovered/Not Resolved]
  - Paraesthesia [Not Recovered/Not Resolved]
